FAERS Safety Report 21681953 (Version 1)
Quarter: 2022Q4

REPORT INFORMATION
  Report Type: Report from Study
  Country: US (occurrence: US)
  Receive Date: 20221205
  Receipt Date: 20221205
  Transmission Date: 20230113
  Serious: Yes (Hospitalization, Other)
  Sender: FDA-Public Use
  Company Number: US-KOREA IPSEN Pharma-2022-25137

PATIENT
  Age: 58 Year
  Sex: Female

DRUGS (1)
  1. SOMATULINE DEPOT [Suspect]
     Active Substance: LANREOTIDE ACETATE
     Indication: Carcinoid tumour
     Dosage: 120 MG
     Route: 058
     Dates: start: 202003

REACTIONS (14)
  - Haemoglobin decreased [Unknown]
  - Pleural effusion [Unknown]
  - Disease progression [Not Recovered/Not Resolved]
  - Fatigue [Unknown]
  - Ascites [Unknown]
  - Neoplasm progression [Unknown]
  - Loss of personal independence in daily activities [Unknown]
  - Depression [Unknown]
  - Hypertension [Unknown]
  - Vomiting [Recovered/Resolved]
  - Depressed mood [Not Recovered/Not Resolved]
  - Intentional product misuse [Unknown]
  - Inappropriate schedule of product administration [Unknown]
  - Medication error [Unknown]

NARRATIVE: CASE EVENT DATE: 20220101
